FAERS Safety Report 25953190 (Version 1)
Quarter: 2025Q4

REPORT INFORMATION
  Report Type: Spontaneous
  Country: US (occurrence: US)
  Receive Date: 20251023
  Receipt Date: 20251023
  Transmission Date: 20260117
  Serious: No
  Sender: TEVA
  Company Number: US-TEVA-VS-3382571

PATIENT
  Age: 45 Year
  Sex: Female

DRUGS (2)
  1. NEOMYCIN [Suspect]
     Active Substance: NEOMYCIN
     Indication: Gastrointestinal infection
     Route: 048
     Dates: start: 202202
  2. METRONIDAZOLE [Suspect]
     Active Substance: METRONIDAZOLE
     Indication: Gastrointestinal infection
     Route: 048
     Dates: start: 202202

REACTIONS (2)
  - Palpitations [Unknown]
  - Heart rate irregular [Unknown]

NARRATIVE: CASE EVENT DATE: 20220201
